FAERS Safety Report 15580407 (Version 2)
Quarter: 2018Q4

REPORT INFORMATION
  Report Type: Report from Study
  Country: US (occurrence: US)
  Receive Date: 20181102
  Receipt Date: 20181109
  Transmission Date: 20190205
  Serious: Yes (Other)
  Sender: FDA-Public Use
  Company Number: US-BAYER-2018-198942

PATIENT
  Age: 55 Year
  Sex: Male

DRUGS (2)
  1. STIVARGA [Suspect]
     Active Substance: REGORAFENIB
     Indication: METASTASES TO BILIARY TRACT
  2. STIVARGA [Suspect]
     Active Substance: REGORAFENIB
     Indication: METASTASES TO LIVER
     Dosage: 120 MG, DAILY, FOR 21 DAYS THEN 7 DAYS OFF
     Route: 048
     Dates: start: 20181010

REACTIONS (13)
  - Skin lesion [Unknown]
  - Neuropathy peripheral [Unknown]
  - Procedural failure [Unknown]
  - Constipation [Recovered/Resolved with Sequelae]
  - Diarrhoea [Unknown]
  - Stomatitis [Unknown]
  - Malaise [None]
  - Adverse drug reaction [None]
  - Colon neoplasm [Unknown]
  - Abdominal pain [Unknown]
  - Malaise [Unknown]
  - Off label use [None]
  - Acne [Unknown]

NARRATIVE: CASE EVENT DATE: 20181023
